FAERS Safety Report 11544184 (Version 2)
Quarter: 2015Q4

REPORT INFORMATION
  Report Type: Spontaneous
  Country: JP (occurrence: JP)
  Receive Date: 20150924
  Receipt Date: 20151104
  Transmission Date: 20160304
  Serious: Yes (Hospitalization, Other)
  Sender: FDA-Public Use
  Company Number: JP-ORION CORPORATION ORION PHARMA-ENT 2015-0999

PATIENT
  Age: 56 Year
  Sex: Female

DRUGS (7)
  1. COMTAN [Suspect]
     Active Substance: ENTACAPONE
     Route: 065
  2. AMANTADINE [Suspect]
     Active Substance: AMANTADINE
     Indication: PARKINSON^S DISEASE
     Route: 065
  3. AMANTADINE [Suspect]
     Active Substance: AMANTADINE
     Route: 065
  4. PERGOLIDE [Suspect]
     Active Substance: PERGOLIDE
     Route: 065
  5. COMTAN [Suspect]
     Active Substance: ENTACAPONE
     Indication: PARKINSON^S DISEASE
     Route: 065
  6. PERGOLIDE [Suspect]
     Active Substance: PERGOLIDE
     Route: 065
  7. SELEGILINE [Concomitant]
     Active Substance: SELEGILINE
     Route: 065

REACTIONS (10)
  - Pain [Recovered/Resolved]
  - Dyskinesia [Recovered/Resolved]
  - Hallucination [Recovered/Resolved]
  - On and off phenomenon [Recovered/Resolved]
  - Abnormal dreams [Recovered/Resolved]
  - Stress [Recovered/Resolved]
  - Delirium [Recovered/Resolved]
  - Drug effect decreased [Recovered/Resolved]
  - Panic disorder [Recovered/Resolved]
  - Rapid eye movements sleep abnormal [Recovered/Resolved]
